FAERS Safety Report 10948984 (Version 1)
Quarter: 2015Q1

REPORT INFORMATION
  Report Type: Other
  Country: CA (occurrence: CA)
  Receive Date: 20150324
  Receipt Date: 20150324
  Transmission Date: 20150721
  Serious: Yes (Life-Threatening, Hospitalization)
  Sender: FDA-Public Use
  Company Number: CA-TARO PHARMACEUTICALS U.S.A., INC-2015SUN00783

PATIENT
  Age: 20 Year
  Sex: Male
  Weight: 77.98 kg

DRUGS (2)
  1. CYCLOSPORINE. [Concomitant]
     Active Substance: CYCLOSPORINE
  2. BETADERM [Suspect]
     Active Substance: BETAMETHASONE VALERATE
     Indication: RASH
     Dosage: 0.1 %, TID
     Route: 061

REACTIONS (10)
  - Skin burning sensation [Recovered/Resolved]
  - Dry skin [Recovered/Resolved]
  - Alopecia [Recovered/Resolved]
  - Application site erythema [Recovered/Resolved]
  - Application site pruritus [Recovered/Resolved]
  - Skin exfoliation [Recovered/Resolved]
  - Rash erythematous [Recovered/Resolved]
  - Pruritus [Recovered/Resolved]
  - Herpes zoster [Recovered/Resolved]
  - Paraesthesia [Recovered/Resolved]
